FAERS Safety Report 25691242 (Version 1)
Quarter: 2025Q3

REPORT INFORMATION
  Report Type: Spontaneous
  Country: EU (occurrence: EU)
  Receive Date: 20250818
  Receipt Date: 20250818
  Transmission Date: 20251020
  Serious: Yes (Other)
  Sender: MYLAN
  Company Number: None

PATIENT
  Age: 25 Year
  Sex: Male

DRUGS (20)
  1. TRAMADOL [Suspect]
     Active Substance: TRAMADOL
     Indication: Product used for unknown indication
     Dosage: 9 DOSAGE FORM, TID, 3 TABLETS 3 TIMES A DAY
     Dates: start: 202507, end: 20250716
  2. TRAMADOL [Suspect]
     Active Substance: TRAMADOL
     Dosage: 9 DOSAGE FORM, TID, 3 TABLETS 3 TIMES A DAY
     Dates: start: 202507, end: 20250716
  3. TRAMADOL [Suspect]
     Active Substance: TRAMADOL
     Dosage: 9 DOSAGE FORM, TID, 3 TABLETS 3 TIMES A DAY
     Route: 048
     Dates: start: 202507, end: 20250716
  4. TRAMADOL [Suspect]
     Active Substance: TRAMADOL
     Dosage: 9 DOSAGE FORM, TID, 3 TABLETS 3 TIMES A DAY
     Route: 048
     Dates: start: 202507, end: 20250716
  5. TRAMADOL [Suspect]
     Active Substance: TRAMADOL
     Dosage: 5 DOSAGE FORM, QD, 5 TABLETS PER DAY
     Dates: start: 20250716, end: 20250723
  6. TRAMADOL [Suspect]
     Active Substance: TRAMADOL
     Dosage: 5 DOSAGE FORM, QD, 5 TABLETS PER DAY
     Dates: start: 20250716, end: 20250723
  7. TRAMADOL [Suspect]
     Active Substance: TRAMADOL
     Dosage: 5 DOSAGE FORM, QD, 5 TABLETS PER DAY
     Route: 048
     Dates: start: 20250716, end: 20250723
  8. TRAMADOL [Suspect]
     Active Substance: TRAMADOL
     Dosage: 5 DOSAGE FORM, QD, 5 TABLETS PER DAY
     Route: 048
     Dates: start: 20250716, end: 20250723
  9. ACETAMINOPHEN\OPIUM [Suspect]
     Active Substance: ACETAMINOPHEN\OPIUM
     Indication: Product used for unknown indication
     Dosage: 8 DOSAGE FORM, 2 CAPSULES 4 TIMES A DAY
     Dates: start: 202506, end: 20250625
  10. ACETAMINOPHEN\OPIUM [Suspect]
     Active Substance: ACETAMINOPHEN\OPIUM
     Dosage: 8 DOSAGE FORM, 2 CAPSULES 4 TIMES A DAY
     Dates: start: 202506, end: 20250625
  11. ACETAMINOPHEN\OPIUM [Suspect]
     Active Substance: ACETAMINOPHEN\OPIUM
     Dosage: 8 DOSAGE FORM, 2 CAPSULES 4 TIMES A DAY
     Route: 048
     Dates: start: 202506, end: 20250625
  12. ACETAMINOPHEN\OPIUM [Suspect]
     Active Substance: ACETAMINOPHEN\OPIUM
     Dosage: 8 DOSAGE FORM, 2 CAPSULES 4 TIMES A DAY
     Route: 048
     Dates: start: 202506, end: 20250625
  13. ACETAMINOPHEN\OPIUM [Suspect]
     Active Substance: ACETAMINOPHEN\OPIUM
     Dates: start: 20250625, end: 20250716
  14. ACETAMINOPHEN\OPIUM [Suspect]
     Active Substance: ACETAMINOPHEN\OPIUM
     Dates: start: 20250625, end: 20250716
  15. ACETAMINOPHEN\OPIUM [Suspect]
     Active Substance: ACETAMINOPHEN\OPIUM
     Route: 048
     Dates: start: 20250625, end: 20250716
  16. ACETAMINOPHEN\OPIUM [Suspect]
     Active Substance: ACETAMINOPHEN\OPIUM
     Route: 048
     Dates: start: 20250625, end: 20250716
  17. ACETAMINOPHEN\OPIUM [Suspect]
     Active Substance: ACETAMINOPHEN\OPIUM
     Dosage: 4 DOSAGE FORM, QD, 4 CAPSULES PER DAY
     Dates: start: 20250716, end: 20250723
  18. ACETAMINOPHEN\OPIUM [Suspect]
     Active Substance: ACETAMINOPHEN\OPIUM
     Dosage: 4 DOSAGE FORM, QD, 4 CAPSULES PER DAY
     Route: 048
     Dates: start: 20250716, end: 20250723
  19. ACETAMINOPHEN\OPIUM [Suspect]
     Active Substance: ACETAMINOPHEN\OPIUM
     Dosage: 4 DOSAGE FORM, QD, 4 CAPSULES PER DAY
     Dates: start: 20250716, end: 20250723
  20. ACETAMINOPHEN\OPIUM [Suspect]
     Active Substance: ACETAMINOPHEN\OPIUM
     Dosage: 4 DOSAGE FORM, QD, 4 CAPSULES PER DAY
     Route: 048
     Dates: start: 20250716, end: 20250723

REACTIONS (1)
  - Drug use disorder [Recovering/Resolving]

NARRATIVE: CASE EVENT DATE: 20250601
